FAERS Safety Report 9550752 (Version 2)
Quarter: 2014Q2

REPORT INFORMATION
  Report Type: Spontaneous
  Country: US (occurrence: US)
  Receive Date: 20130924
  Receipt Date: 20140402
  Transmission Date: 20141212
  Serious: No
  Sender: FDA-Public Use
  Company Number: US-SANOFI-AVENTIS-2013SA023090

PATIENT
  Age: 55 Year
  Sex: Female
  Weight: 133.8 kg

DRUGS (11)
  1. AUBAGIO [Suspect]
     Indication: MULTIPLE SCLEROSIS
     Dates: start: 20130101
  2. AUBAGIO [Suspect]
     Indication: MULTIPLE SCLEROSIS
     Route: 048
     Dates: end: 20130812
  3. GABAPENTIN [Concomitant]
     Indication: NEUROPATHY PERIPHERAL
     Dates: start: 201208
  4. LAMICTAL [Concomitant]
     Indication: BIPOLAR I DISORDER
     Dates: start: 201208
  5. EFFEXOR [Concomitant]
     Indication: BIPOLAR I DISORDER
     Dates: start: 2008
  6. TRAZODONE [Concomitant]
     Indication: BIPOLAR I DISORDER
     Dates: start: 201201
  7. SYNTHROID [Concomitant]
     Indication: HYPOTHYROIDISM
     Dates: start: 1984
  8. BACLOFEN [Concomitant]
     Indication: MUSCLE SPASTICITY
     Dates: start: 200903
  9. POTASSIUM [Concomitant]
     Indication: MUSCLE SPASMS
     Dates: start: 201209
  10. LASIX [Concomitant]
     Indication: PERIPHERAL SWELLING
     Dates: start: 201201
  11. REQUIP [Concomitant]
     Indication: RESTLESS LEGS SYNDROME
     Dates: start: 2007

REACTIONS (7)
  - Oedema peripheral [Unknown]
  - Condition aggravated [Unknown]
  - Gait disturbance [Unknown]
  - Diplopia [Recovered/Resolved]
  - Flatulence [Not Recovered/Not Resolved]
  - Asthenia [Unknown]
  - Extra dose administered [Unknown]
